FAERS Safety Report 8578145-4 (Version None)
Quarter: 2012Q3

REPORT INFORMATION
  Report Type: 
  Country: None (occurrence: None)
  Receive Date: 20120808
  Receipt Date: 20120730
  Transmission Date: 20120928
  Serious: Yes (Hospitalization)
  Sender: FDA-Public Use
  Company Number: US-BAYER-2012-073394

PATIENT
  Age: 27 Year
  Sex: Female
  Weight: 63.764 kg

DRUGS (8)
  1. CLONAZEPAM [Concomitant]
     Dosage: 0.5 MG, UNK
  2. LORAZEPAM [Concomitant]
     Dosage: 1 MG, UNK
  3. ZOLOFT [Concomitant]
     Dosage: 100 MG, UNK
  4. ABILIFY [Concomitant]
     Dosage: 10 MG, UNK
  5. YAZ [Suspect]
  6. YASMIN [Suspect]
  7. LAMICTAL [Concomitant]
     Dosage: 25 MG, UNK
  8. LITHIUM CARBONATE [Concomitant]
     Dosage: 300 MG, UNK

REACTIONS (1)
  - PULMONARY EMBOLISM [None]
